FAERS Safety Report 10903960 (Version 4)
Quarter: 2015Q2

REPORT INFORMATION
  Report Type: Spontaneous
  Country: US (occurrence: US)
  Receive Date: 20150311
  Receipt Date: 20150529
  Transmission Date: 20150821
  Serious: Yes (Other)
  Sender: FDA-Public Use
  Company Number: US-ASTELLAS-2015US006909

PATIENT
  Age: 87 Year
  Sex: Male

DRUGS (2)
  1. XTANDI [Suspect]
     Active Substance: ENZALUTAMIDE
     Indication: PROSTATE CANCER
     Route: 048
     Dates: start: 20141209
  2. XTANDI [Suspect]
     Active Substance: ENZALUTAMIDE
     Route: 048

REACTIONS (11)
  - Sneezing [Unknown]
  - Asthenia [Unknown]
  - Arthralgia [Unknown]
  - Nasal congestion [Unknown]
  - Diarrhoea [Unknown]
  - Fatigue [Unknown]
  - Blood urine present [Unknown]
  - Dyspnoea [Unknown]
  - Haemorrhoids [Unknown]
  - Abdominal discomfort [Unknown]
  - Urinary tract infection [Recovered/Resolved]

NARRATIVE: CASE EVENT DATE: 201502
